FAERS Safety Report 20539702 (Version 1)
Quarter: 2022Q1

REPORT INFORMATION
  Report Type: Report from Study
  Country: CA (occurrence: CA)
  Receive Date: 20220302
  Receipt Date: 20220302
  Transmission Date: 20220423
  Serious: Yes (Hospitalization)
  Sender: FDA-Public Use
  Company Number: CA-BAYER-2021A234616

PATIENT
  Sex: Male
  Weight: 75.5 kg

DRUGS (32)
  1. PLACEBO [Suspect]
     Active Substance: UNSPECIFIED INGREDIENT
     Indication: Hormone-refractory prostate cancer
     Dosage: 500 MG, QD
     Route: 048
     Dates: start: 20211015, end: 20211020
  2. PLACEBO [Suspect]
     Active Substance: UNSPECIFIED INGREDIENT
     Indication: Metastases to bone
     Dosage: 500 MG, QD
     Route: 048
     Dates: start: 20211109
  3. PREDNISONE [Suspect]
     Active Substance: PREDNISONE
     Indication: Hormone-refractory prostate cancer
     Dosage: 5 MG, BID
     Route: 048
     Dates: start: 20211015, end: 20211020
  4. PREDNISONE [Suspect]
     Active Substance: PREDNISONE
     Indication: Metastases to bone
     Dosage: 5 MG, BID
     Route: 048
     Dates: start: 20211109
  5. PREDNISONE [Suspect]
     Active Substance: PREDNISONE
     Dosage: 5MG
     Route: 048
     Dates: start: 20211021, end: 20211108
  6. HALDOL [Concomitant]
     Active Substance: HALOPERIDOL
     Indication: Delirium
     Dosage: 0.5MG QD
     Route: 058
     Dates: start: 20211016, end: 20211108
  7. POTASSIUM CHLORIDE [Concomitant]
     Active Substance: POTASSIUM CHLORIDE
     Indication: Hypokalaemia
     Dosage: 20 MMOL, BID
     Route: 048
     Dates: start: 20211004, end: 20211018
  8. POTASSIUM CHLORIDE [Concomitant]
     Active Substance: POTASSIUM CHLORIDE
     Indication: Hypokalaemia
     Dosage: 40 MMOL, BID
     Route: 048
     Dates: start: 20211018, end: 20211031
  9. FOSAMAX [Concomitant]
     Active Substance: ALENDRONATE SODIUM
     Indication: Osteoporosis prophylaxis
     Dosage: 70MG EVERY SUNDAY
     Route: 048
     Dates: start: 20211019, end: 20211117
  10. PERINDOPRIL [Concomitant]
     Active Substance: PERINDOPRIL
     Dosage: 8MG
     Route: 048
     Dates: start: 20211015, end: 20211101
  11. PERINDOPRIL [Concomitant]
     Active Substance: PERINDOPRIL
     Dosage: 2MG
     Route: 048
     Dates: start: 20211102
  12. BISOPROLOL FUMARATE [Concomitant]
     Active Substance: BISOPROLOL FUMARATE
     Dosage: 2.5MG
     Route: 048
     Dates: start: 20211102
  13. IRON [Concomitant]
     Active Substance: IRON
     Indication: Mineral supplementation
     Dosage: 300 MG, BID
     Route: 048
     Dates: start: 20211015, end: 20211017
  14. NADOLOL [Concomitant]
     Active Substance: NADOLOL
     Dosage: 160MG
     Route: 048
     Dates: start: 20211015, end: 20211117
  15. SEROQUEL [Concomitant]
     Active Substance: QUETIAPINE FUMARATE
     Indication: Delirium
     Dosage: 25MG 9PM
     Route: 048
     Dates: start: 20211025, end: 20211101
  16. SEROQUEL [Concomitant]
     Active Substance: QUETIAPINE FUMARATE
     Indication: Delirium
     Dosage: 12.5MG 9PM
     Route: 048
     Dates: start: 20211102, end: 20211104
  17. PANTOPRAZOLE SODIUM [Concomitant]
     Active Substance: PANTOPRAZOLE SODIUM
     Indication: Gastrointestinal disorder prophylaxis
     Dosage: 40MG
     Route: 048
     Dates: start: 20211015, end: 20211117
  18. METFORMIN [Concomitant]
     Active Substance: METFORMIN HYDROCHLORIDE
     Indication: Diabetes mellitus
     Dosage: 850 MG, TID
     Dates: start: 20211015, end: 20211117
  19. LIPITOR [Concomitant]
     Active Substance: ATORVASTATIN CALCIUM
     Indication: Dyslipidaemia
     Dosage: 40MG
     Route: 048
     Dates: start: 20211015, end: 20211117
  20. VITAMIN B12 [Concomitant]
     Active Substance: CYANOCOBALAMIN
     Indication: Vitamin supplementation
     Dosage: 1200MG
     Route: 048
  21. FENOPTIC [Concomitant]
     Indication: Glaucoma
     Dosage: RIGHT EYE
     Dates: start: 20211015, end: 20211117
  22. TRUSOPT [Concomitant]
     Active Substance: DORZOLAMIDE HYDROCHLORIDE
     Indication: Glaucoma
     Dosage: RIGHT EYE
     Dates: start: 20211015, end: 20211117
  23. CALCITONINE [CALCITONIN] [Concomitant]
     Indication: Prophylaxis
     Dosage: 50
     Route: 058
     Dates: start: 20211017, end: 20211023
  24. TYLENOL [Concomitant]
     Active Substance: ACETAMINOPHEN
     Indication: Back pain
     Dosage: 650 MG, PRN
     Route: 048
     Dates: start: 20211016, end: 20211017
  25. TYLENOL [Concomitant]
     Active Substance: ACETAMINOPHEN
     Indication: Back pain
     Dosage: 650 MG, QD
     Route: 048
     Dates: start: 20211018, end: 20211102
  26. TYLENOL [Concomitant]
     Active Substance: ACETAMINOPHEN
     Indication: Back pain
     Dosage: 650 MG, PRN
     Route: 048
     Dates: start: 20211103, end: 20211117
  27. NOVORAPID [Concomitant]
     Active Substance: INSULIN ASPART
     Indication: Diabetes mellitus
     Dosage: UNK UNK, QD
     Route: 058
     Dates: start: 20211017, end: 20211117
  28. CHOLECALCIFEROL [Concomitant]
     Active Substance: CHOLECALCIFEROL
     Indication: Vitamin supplementation
     Dosage: 10000 UNITS
     Route: 048
     Dates: start: 20211019, end: 20211117
  29. MAGNESIUM SULFATE [Concomitant]
     Active Substance: MAGNESIUM SULFATE
     Indication: Hypomagnesaemia
     Dosage: UNK
     Route: 042
     Dates: start: 20211019
  30. CLAVULIN 12H [Concomitant]
     Indication: Urinary tract infection
     Dosage: UNK
     Route: 048
     Dates: start: 20211019, end: 20211029
  31. ZOFRAN [Concomitant]
     Active Substance: ONDANSETRON HYDROCHLORIDE
     Indication: Nausea
     Dosage: 4 MG, PRN
     Route: 048
     Dates: start: 20211028, end: 20211117
  32. JARDIANCE [Concomitant]
     Active Substance: EMPAGLIFLOZIN
     Indication: Diabetes mellitus
     Dosage: 10MG
     Route: 048
     Dates: start: 20211113, end: 20211117

REACTIONS (1)
  - Acute pulmonary oedema [Not Recovered/Not Resolved]

NARRATIVE: CASE EVENT DATE: 20211015
